FAERS Safety Report 8916442 (Version 1)
Quarter: 2012Q4

REPORT INFORMATION
  Report Type: Report from Study
  Country: ES (occurrence: ES)
  Receive Date: 20121120
  Receipt Date: 20121120
  Transmission Date: 20130627
  Serious: Yes (Hospitalization)
  Sender: FDA-Public Use
  Company Number: US-ASTELLAS-2012US011205

PATIENT
  Age: 67 Year
  Sex: Female
  Weight: 55 kg

DRUGS (9)
  1. ERLOTINIB TABLET [Suspect]
     Indication: PANCREATIC CARCINOMA
     Dosage: 100 mg, UID/QD
     Route: 048
     Dates: start: 20120821, end: 20120928
  2. GEMCITABINE                        /01215702/ [Suspect]
     Indication: PANCREATIC CARCINOMA
     Dosage: 841 mg, day 1, 8 and 15 of 28 day cycle
     Route: 042
     Dates: start: 20120821
  3. GEMCITABINE                        /01215702/ [Suspect]
     Dosage: 841 mg, day 1, 8 and 15 of 28 day cycle
     Route: 042
     Dates: start: 20120821, end: 20121010
  4. TELMISARTAN [Concomitant]
     Indication: HYPERTENSION
     Dosage: 80/1.25 mg
     Route: 048
     Dates: start: 20110610
  5. RANITIDINA [Concomitant]
     Indication: PRODUCT USED FOR UNKNOWN INDICATION
     Dosage: 300 mg, UID/QD
     Route: 048
     Dates: start: 20120821
  6. METOCLOPRAMIDE [Concomitant]
     Indication: NAUSEA
     Dosage: 20 mg, Q8 hours
     Route: 048
     Dates: start: 20120821
  7. ONDANSETRON [Concomitant]
     Indication: NAUSEA
     Dosage: 4 mg, Q12 hours
     Route: 048
     Dates: start: 20120821
  8. MORPHINE [Concomitant]
     Indication: PAIN
     Dosage: 1 DF, prn
     Route: 048
     Dates: start: 20120821
  9. SEGURIL [Concomitant]
     Indication: OEDEMA
     Dosage: 40 mg, prn
     Route: 048
     Dates: start: 20120902

REACTIONS (4)
  - Thrombocytopenia [Recovered/Resolved]
  - Thrombocytopenia [Unknown]
  - Pyrexia [Recovered/Resolved]
  - Urinary tract infection [Recovered/Resolved]
